FAERS Safety Report 9234586 (Version 1)
Quarter: 2013Q2

REPORT INFORMATION
  Report Type: Spontaneous
  Country: US (occurrence: US)
  Receive Date: 20130416
  Receipt Date: 20130416
  Transmission Date: 20140414
  Serious: No
  Sender: FDA-Public Use
  Company Number: US-MYLANLABS-2013S1000742

PATIENT
  Sex: Female
  Weight: 73.03 kg

DRUGS (1)
  1. VALSARTAN AND HYDROCHLOROTHIAZIDE TABLETS [Suspect]
     Indication: HYPERTENSION
     Route: 048
     Dates: start: 2012, end: 2012

REACTIONS (3)
  - Drug ineffective [Recovered/Resolved]
  - Blood pressure systolic increased [Recovered/Resolved]
  - Local swelling [Recovered/Resolved]
